FAERS Safety Report 21991351 (Version 2)
Quarter: 2023Q1

REPORT INFORMATION
  Report Type: Spontaneous
  Country: US (occurrence: US)
  Receive Date: 20230214
  Receipt Date: 20230315
  Transmission Date: 20230417
  Serious: No
  Sender: FDA-Public Use
  Company Number: US-PFIZER INC-2022BHV003229

PATIENT
  Age: 65 Year
  Sex: Female
  Weight: 64.399 kg

DRUGS (2)
  1. NURTEC ODT [Suspect]
     Active Substance: RIMEGEPANT SULFATE
     Dosage: 75 MG, AS NEEDED
     Route: 048
     Dates: start: 20221112
  2. RIZATRIPTAN [RIZATRIPTAN BENZOATE] [Concomitant]
     Dosage: UNK

REACTIONS (6)
  - Sluggishness [Unknown]
  - Visual impairment [Unknown]
  - Head discomfort [Unknown]
  - Dizziness [Unknown]
  - Feeling abnormal [Unknown]
  - Therapeutic product effect delayed [Unknown]

NARRATIVE: CASE EVENT DATE: 20221101
